FAERS Safety Report 12230990 (Version 4)
Quarter: 2020Q4

REPORT INFORMATION
  Report Type: Spontaneous
  Country: US (occurrence: US)
  Receive Date: 20160401
  Receipt Date: 20201207
  Transmission Date: 20210113
  Serious: Yes (Life-Threatening, Hospitalization, Other)
  Sender: FDA-Public Use
  Company Number: US-SHIRE-US201603672

PATIENT
  Age: 31 Year
  Sex: Male
  Weight: 76.2 kg

DRUGS (9)
  1. GATTEX [Suspect]
     Active Substance: TEDUGLUTIDE\WATER
     Dosage: 3.6 MILLIGRAM, QD
     Route: 058
     Dates: start: 20201123
  2. TPN [Concomitant]
     Active Substance: AMINO ACIDS\DEXTROSE\ELECTROLYTES NOS\SOYBEAN OIL
     Indication: PRODUCT USED FOR UNKNOWN INDICATION
     Dosage: UNK, UNKNOWN
     Route: 065
  3. GATTEX [Suspect]
     Active Substance: TEDUGLUTIDE\WATER
     Indication: SHORT-BOWEL SYNDROME
     Dosage: 0.5 MG/KG, 1X/DAY:QD
     Route: 058
     Dates: start: 20131008
  4. GATTEX [Suspect]
     Active Substance: TEDUGLUTIDE\WATER
     Dosage: 3.6 MILLIGRAM, QD
     Route: 058
     Dates: start: 20201123
  5. GATTEX [Suspect]
     Active Substance: TEDUGLUTIDE\WATER
     Indication: SHORT-BOWEL SYNDROME
     Dosage: 0.5 MG/KG, 1X/DAY:QD
     Route: 058
     Dates: start: 20131008
  6. GATTEX [Suspect]
     Active Substance: TEDUGLUTIDE\WATER
     Indication: SHORT-BOWEL SYNDROME
     Dosage: 0.5 MG/KG, 1X/DAY:QD
     Route: 058
     Dates: start: 20131008
  7. GATTEX [Suspect]
     Active Substance: TEDUGLUTIDE\WATER
     Dosage: 3.6 MILLIGRAM, QD
     Route: 058
     Dates: start: 20201123
  8. GATTEX [Suspect]
     Active Substance: TEDUGLUTIDE\WATER
     Dosage: 3.6 MILLIGRAM, QD
     Route: 058
     Dates: start: 20201123
  9. GATTEX [Suspect]
     Active Substance: TEDUGLUTIDE\WATER
     Indication: SHORT-BOWEL SYNDROME
     Dosage: 0.5 MG/KG, 1X/DAY:QD
     Route: 058
     Dates: start: 20131008

REACTIONS (6)
  - Duodenal ulcer haemorrhage [Recovered/Resolved]
  - Helicobacter infection [Unknown]
  - Inappropriate schedule of product administration [Unknown]
  - Haemoptysis [Unknown]
  - Haemodynamic instability [Unknown]
  - Anaemia [Unknown]

NARRATIVE: CASE EVENT DATE: 20160321
